FAERS Safety Report 6102700-4 (Version None)
Quarter: 2009Q1

REPORT INFORMATION
  Report Type: 
  Country: None (occurrence: None)
  Receive Date: 20090304
  Receipt Date: 20070705
  Transmission Date: 20090719
  Serious: Yes (Other)
  Sender: FDA-Public Use
  Company Number: B0478119A

PATIENT
  Age: 85 Year
  Sex: Male

DRUGS (2)
  1. REQUIP [Suspect]
     Indication: RESTLESS LEGS SYNDROME
     Dosage: .75MG PER DAY
     Route: 048
  2. MODOPAR [Concomitant]
     Indication: PARKINSON'S DISEASE
     Dosage: 250MG PER DAY
     Route: 048

REACTIONS (1)
  - SUDDEN ONSET OF SLEEP [None]
